FAERS Safety Report 5347753-6 (Version None)
Quarter: 2007Q2

REPORT INFORMATION
  Report Type: 
  Country: None (occurrence: None)
  Receive Date: 20070606
  Receipt Date: 20070604
  Transmission Date: 20071010
  Serious: Yes (Hospitalization)
  Sender: FDA-Public Use
  Company Number: A0653959A

PATIENT
  Age: 41 Year
  Sex: Male

DRUGS (4)
  1. NICORETTE [Suspect]
     Indication: SMOKING CESSATION THERAPY
     Dosage: 6GUM PER DAY
     Route: 002
     Dates: start: 20060101
  2. NIQUITIN [Suspect]
  3. VITAMIN B [Concomitant]
  4. VITAMIN D [Concomitant]

REACTIONS (8)
  - ANXIETY [None]
  - BURNING SENSATION [None]
  - DRUG INEFFECTIVE [None]
  - INCORRECT DOSE ADMINISTERED [None]
  - ORAL DISCOMFORT [None]
  - PERINEURIAL CYST [None]
  - TOBACCO ABUSE [None]
  - UNEVALUABLE EVENT [None]
